FAERS Safety Report 4836014-7 (Version None)
Quarter: 2005Q4

REPORT INFORMATION
  Report Type: 
  Country: None (occurrence: None)
  Receive Date: 20051123
  Receipt Date: 20051114
  Transmission Date: 20060501
  Serious: Yes (Death, Hospitalization)
  Sender: FDA-Public Use
  Company Number: US-SANOFI-SYNTHELABO-A03200503703

PATIENT
  Age: 56 Year
  Sex: Female
  Weight: 77.6 kg

DRUGS (7)
  1. OXALIPLATIN [Suspect]
     Indication: RECTAL CANCER STAGE IV
     Route: 042
     Dates: start: 20050423, end: 20050423
  2. AVASTIN [Suspect]
     Indication: RECTAL CANCER STAGE IV
     Route: 042
  3. LEUCOVORIN [Concomitant]
     Dosage: UNK
     Route: 042
     Dates: start: 20050401, end: 20050423
  4. FLUOROURACIL [Concomitant]
     Dosage: UNK
     Route: 042
     Dates: start: 20050401, end: 20050423
  5. INVANZ [Concomitant]
     Dosage: UNK
     Route: 065
  6. INTRAVENOUS FLUIDS [Concomitant]
     Dosage: UNK
     Route: 042
  7. MORPHINE [Concomitant]
     Dosage: UNK
     Route: 065

REACTIONS (10)
  - CONFUSIONAL STATE [None]
  - COORDINATION ABNORMAL [None]
  - DISORIENTATION [None]
  - ELECTROLYTE IMBALANCE [None]
  - GAZE PALSY [None]
  - METABOLIC DISORDER [None]
  - NAUSEA [None]
  - NEUTROPENIA [None]
  - THROMBOCYTOPENIA [None]
  - VOMITING [None]
